FAERS Safety Report 10568885 (Version 3)
Quarter: 2014Q4

REPORT INFORMATION
  Report Type: Spontaneous
  Country: GB (occurrence: GB)
  Receive Date: 20141106
  Receipt Date: 20141222
  Transmission Date: 20150529
  Serious: Yes (Disabling)
  Sender: FDA-Public Use
  Company Number: GB-BAYER-2014-161400

PATIENT
  Age: 48 Year
  Sex: Female
  Weight: 81 kg

DRUGS (2)
  1. MIRENA [Suspect]
     Active Substance: LEVONORGESTREL
     Indication: MENORRHAGIA
     Dosage: 20 MCG/24HR, CONT
     Route: 015
     Dates: start: 20131209, end: 2014
  2. MIRENA [Suspect]
     Active Substance: LEVONORGESTREL
     Indication: MENSTRUATION IRREGULAR

REACTIONS (3)
  - Optic ischaemic neuropathy [None]
  - Migraine [None]
  - Blindness unilateral [None]

NARRATIVE: CASE EVENT DATE: 2014
